FAERS Safety Report 11014056 (Version 2)
Quarter: 2015Q2

REPORT INFORMATION
  Report Type: Spontaneous
  Country: US (occurrence: US)
  Receive Date: 20150412
  Receipt Date: 20150525
  Transmission Date: 20150821
  Serious: No
  Sender: FDA-Public Use
  Company Number: US-JNJFOC-20140713026

PATIENT
  Age: 70 Year
  Sex: Female
  Weight: 51.71 kg

DRUGS (14)
  1. LOVAZA [Concomitant]
     Active Substance: OMEGA-3-ACID ETHYL ESTERS
     Indication: EYE DISORDER
     Route: 065
  2. RESTASIS [Concomitant]
     Active Substance: CYCLOSPORINE
     Indication: EYE DISORDER
     Dosage: 2 DROP DAY
     Route: 047
  3. MELOXICAM. [Concomitant]
     Active Substance: MELOXICAM
     Indication: LIMB INJURY
     Route: 065
  4. FERRALET [Concomitant]
     Indication: ANAEMIA
     Dosage: 3 DAY
     Route: 065
  5. FLORASTOR PROBIOTIC [Concomitant]
     Route: 065
  6. LIALDA [Concomitant]
     Active Substance: MESALAMINE
     Indication: COLITIS ULCERATIVE
     Route: 065
  7. LYRICA [Concomitant]
     Active Substance: PREGABALIN
     Indication: NERVE INJURY
     Route: 065
  8. PRESERVISION SOFTGELS WITH LUTEIN [Concomitant]
     Indication: EYE DISORDER
     Dosage: 2 DAY
     Route: 065
  9. DITROPAN XL [Concomitant]
     Active Substance: OXYBUTYNIN CHLORIDE
     Indication: CYSTITIS
     Route: 065
  10. RHYTHMOL (PROPAFENONE) [Concomitant]
     Indication: HEART RATE
     Route: 065
  11. ADVAIR HFA [Concomitant]
     Active Substance: FLUTICASONE PROPIONATE\SALMETEROL XINAFOATE
     Indication: ASTHMA
     Route: 065
  12. SINGULAIR [Concomitant]
     Active Substance: MONTELUKAST SODIUM
     Indication: ASTHMA
     Route: 065
  13. ELMIRON [Suspect]
     Active Substance: PENTOSAN POLYSULFATE SODIUM
     Indication: CYSTITIS
     Route: 065
  14. NEXIUM [Concomitant]
     Active Substance: ESOMEPRAZOLE MAGNESIUM
     Indication: GASTROOESOPHAGEAL REFLUX DISEASE
     Route: 065

REACTIONS (1)
  - Extra dose administered [Not Recovered/Not Resolved]
